FAERS Safety Report 6185969-X (Version None)
Quarter: 2009Q2

REPORT INFORMATION
  Report Type: 
  Country: None (occurrence: None)
  Receive Date: 20090511
  Receipt Date: 20080901
  Transmission Date: 20091009
  Serious: Yes (Other)
  Sender: FDA-Public Use
  Company Number: PHHY2008ZA33990

PATIENT
  Sex: Male

DRUGS (6)
  1. GLEEVEC [Suspect]
     Indication: CHRONIC MYELOID LEUKAEMIA
     Dosage: 400 MG/DAY
     Dates: start: 20030601
  2. GLEEVEC [Suspect]
     Dosage: 300 MG/DAY
     Dates: start: 20040401, end: 20040501
  3. GLEEVEC [Suspect]
     Dosage: 800 MG/DAY
     Dates: start: 20080204, end: 20080227
  4. GLEEVEC [Suspect]
     Dosage: 600 MG/DAY
     Dates: start: 20080312
  5. HYDROXYUREA [Concomitant]
     Indication: CHRONIC MYELOID LEUKAEMIA
     Dosage: 1-3 G
     Dates: start: 20010901, end: 20030601
  6. HYDROXYUREA [Concomitant]
     Dosage: 1-3 G
     Dates: start: 20040601, end: 20071201

REACTIONS (10)
  - ANAEMIA HAEMOLYTIC AUTOIMMUNE [None]
  - APPENDICITIS [None]
  - BLAST CRISIS IN MYELOGENOUS LEUKAEMIA [None]
  - CLONAL EVOLUTION [None]
  - HAEMOLYTIC ANAEMIA [None]
  - HAEMORRHAGE [None]
  - PRURITUS [None]
  - RASH ERYTHEMATOUS [None]
  - SPLENOMEGALY [None]
  - THROMBOCYTOPENIA [None]
